FAERS Safety Report 9815504 (Version 1)
Quarter: 2014Q1

REPORT INFORMATION
  Report Type: Spontaneous
  Country: US (occurrence: US)
  Receive Date: 20140114
  Receipt Date: 20140114
  Transmission Date: 20141002
  Serious: No
  Sender: FDA-Public Use
  Company Number: US-PFIZER INC-2014010328

PATIENT
  Age: 63 Year
  Sex: Male
  Weight: 87.98 kg

DRUGS (4)
  1. PRISTIQ [Suspect]
     Indication: NERVOUS SYSTEM DISORDER
     Dosage: 50 MG, DAILY
     Dates: start: 2013
  2. DILTIAZEM [Concomitant]
     Indication: BLOOD PRESSURE ABNORMAL
     Dosage: 120 MG, DAILY
  3. FLOMAX [Concomitant]
     Indication: URINARY TRACT DISORDER
     Dosage: 0.4 MG, DAILY
  4. FLOMAX [Concomitant]
     Indication: PROSTATIC DISORDER

REACTIONS (2)
  - Rash [Not Recovered/Not Resolved]
  - Pruritus [Unknown]
